FAERS Safety Report 17162865 (Version 1)
Quarter: 2019Q4

REPORT INFORMATION
  Report Type: Spontaneous
  Country: US (occurrence: US)
  Receive Date: 20191216
  Receipt Date: 20191216
  Transmission Date: 20200122
  Serious: Yes (Other)
  Sender: FDA-Public Use
  Company Number: None

PATIENT
  Age: 90 Year
  Sex: Female
  Weight: 67.95 kg

DRUGS (20)
  1. ASPIRIN. [Concomitant]
     Active Substance: ASPIRIN
  2. MULTIVITAMIN [Concomitant]
     Active Substance: VITAMINS
  3. ONDANSETRON [Concomitant]
     Active Substance: ONDANSETRON
  4. TRAMADOL. [Concomitant]
     Active Substance: TRAMADOL
  5. BRAFTOVI [Suspect]
     Active Substance: ENCORAFENIB
     Indication: LUNG NEOPLASM MALIGNANT
     Route: 048
     Dates: start: 20191026
  6. FUROSEMIDE. [Concomitant]
     Active Substance: FUROSEMIDE
  7. GLYBURIDE. [Concomitant]
     Active Substance: GLYBURIDE
  8. NORCO [Concomitant]
     Active Substance: ACETAMINOPHEN\HYDROCODONE BITARTRATE
  9. MEKTOVIE [Concomitant]
     Route: 048
     Dates: start: 20191026
  10. IBUPROFEN. [Concomitant]
     Active Substance: IBUPROFEN
  11. MELATONIN [Concomitant]
     Active Substance: MELATONIN
  12. TYLENOL [Concomitant]
     Active Substance: ACETAMINOPHEN
  13. NYSTATIN. [Concomitant]
     Active Substance: NYSTATIN
  14. PANTOPRAZOLE [Concomitant]
     Active Substance: PANTOPRAZOLE
  15. TRADJENTA [Concomitant]
     Active Substance: LINAGLIPTIN
  16. LISINOPRIL. [Concomitant]
     Active Substance: LISINOPRIL
  17. OMEPRAZOLE. [Concomitant]
     Active Substance: OMEPRAZOLE
  18. BRAFTOVI [Suspect]
     Active Substance: ENCORAFENIB
     Indication: BRONCHIAL CARCINOMA
     Route: 048
     Dates: start: 20191026
  19. LEVOTHYROXINE. [Concomitant]
     Active Substance: LEVOTHYROXINE
  20. VITAMIN B1 [Concomitant]
     Active Substance: THIAMINE HYDROCHLORIDE

REACTIONS (1)
  - Hospice care [None]
